FAERS Safety Report 5938552-2 (Version None)
Quarter: 2008Q4

REPORT INFORMATION
  Report Type: 
  Country: None (occurrence: None)
  Receive Date: 20081103
  Receipt Date: 20081024
  Transmission Date: 20090506
  Serious: Yes (Other)
  Sender: FDA-Public Use
  Company Number: PHHY2008BE02723

PATIENT
  Sex: Female
  Weight: 64 kg

DRUGS (4)
  1. ZOLEDRONATE T29581+SOLINJ+BM [Suspect]
     Indication: BREAST CANCER
     Dosage: 4 MG
     Route: 042
     Dates: start: 20041216, end: 20071218
  2. FEMARA [Suspect]
     Indication: BREAST CANCER
     Dosage: 2.5 MG
     Route: 048
     Dates: start: 20050718
  3. VITAMIN D [Concomitant]
  4. CALCIUM [Concomitant]

REACTIONS (6)
  - ABSCESS [None]
  - OEDEMA MOUTH [None]
  - OSTEONECROSIS [None]
  - PAIN [None]
  - PRIMARY SEQUESTRUM [None]
  - SOFT TISSUE INFECTION [None]
